FAERS Safety Report 21222726 (Version 5)
Quarter: 2023Q4

REPORT INFORMATION
  Report Type: Spontaneous
  Country: FR (occurrence: FR)
  Receive Date: 20220817
  Receipt Date: 20231123
  Transmission Date: 20240110
  Serious: Yes (Death, Other)
  Sender: FDA-Public Use
  Company Number: FR-GSKCCFEMEA-Case-01552516_AE-61111

PATIENT

DRUGS (6)
  1. PAROXETINE HYDROCHLORIDE [Suspect]
     Active Substance: PAROXETINE HYDROCHLORIDE\PAROXETINE HYDROCHLORIDE ANHYDROUS
     Indication: Obsessive-compulsive disorder
     Dosage: 20 MG, QD
     Dates: start: 20210304
  2. PAROXETINE HYDROCHLORIDE [Suspect]
     Active Substance: PAROXETINE HYDROCHLORIDE\PAROXETINE HYDROCHLORIDE ANHYDROUS
     Dosage: 30 MG, QD
     Dates: start: 20210311
  3. PAROXETINE HYDROCHLORIDE [Suspect]
     Active Substance: PAROXETINE HYDROCHLORIDE\PAROXETINE HYDROCHLORIDE ANHYDROUS
     Dosage: 40 MG, QD
     Dates: start: 20210608
  4. SUMATRIPTAN SUCCINATE [Suspect]
     Active Substance: SUMATRIPTAN SUCCINATE
     Indication: Obsessive-compulsive disorder
     Dosage: UNK
  5. PAXIL [Suspect]
     Active Substance: PAROXETINE HYDROCHLORIDE
     Indication: Product used for unknown indication
     Dosage: UNK
     Dates: start: 20210304
  6. CYAMEMAZINE [Suspect]
     Active Substance: CYAMEMAZINE
     Indication: Product used for unknown indication
     Dosage: UNK (12 DROPS)
     Route: 048
     Dates: start: 20210726, end: 20210909

REACTIONS (17)
  - Completed suicide [Fatal]
  - Suicidal ideation [Unknown]
  - Suicide attempt [Unknown]
  - Cognitive disorder [Not Recovered/Not Resolved]
  - Mental impairment [Unknown]
  - Aggression [Not Recovered/Not Resolved]
  - Sleep disorder [Not Recovered/Not Resolved]
  - Depression [Unknown]
  - Aphasia [Unknown]
  - Affective disorder [Not Recovered/Not Resolved]
  - Affect lability [Not Recovered/Not Resolved]
  - Disinhibition [Not Recovered/Not Resolved]
  - Judgement impaired [Not Recovered/Not Resolved]
  - Irritability [Not Recovered/Not Resolved]
  - Dissociation [Not Recovered/Not Resolved]
  - Condition aggravated [Unknown]
  - Product use issue [Unknown]

NARRATIVE: CASE EVENT DATE: 20210701
